FAERS Safety Report 8484634-3 (Version None)
Quarter: 2012Q3

REPORT INFORMATION
  Report Type: 
  Country: None (occurrence: None)
  Receive Date: 20120703
  Receipt Date: 20120330
  Transmission Date: 20120928
  Serious: No
  Sender: FDA-Public Use
  Company Number: US-TEVA-330943USA

PATIENT
  Sex: Male
  Weight: 83.99 kg

DRUGS (6)
  1. TESTOSTERONE [Concomitant]
     Indication: BLOOD TESTOSTERONE
     Route: 061
  2. ERGOCALCIFEROL [Concomitant]
     Indication: SUPPLEMENTATION THERAPY
  3. NEBIVOLOL [Concomitant]
     Indication: BLOOD PRESSURE
     Route: 048
  4. AZITHROMYCIN [Concomitant]
     Indication: SINUSITIS
     Dates: start: 20120323
  5. ROSUVASTATIN [Concomitant]
     Indication: BLOOD CHOLESTEROL
     Route: 048
  6. NUVIGIL [Suspect]
     Indication: SLEEP APNOEA SYNDROME
     Route: 048
     Dates: start: 20120301

REACTIONS (4)
  - DRY MOUTH [None]
  - DIARRHOEA [None]
  - INSOMNIA [None]
  - SINUSITIS [None]
